FAERS Safety Report 4517170-7 (Version None)
Quarter: 2004Q4

REPORT INFORMATION
  Report Type: 
  Country: None (occurrence: None)
  Receive Date: 20041202
  Receipt Date: 20041123
  Transmission Date: 20050328
  Serious: Yes (Hospitalization)
  Sender: FDA-Public Use
  Company Number: US-MERCK-0411USA03672

PATIENT
  Age: 75 Year
  Sex: Male

DRUGS (6)
  1. ZOCOR [Suspect]
     Indication: HYPERCHOLESTEROLAEMIA
     Route: 048
  2. PRINIVIL [Concomitant]
     Route: 048
     Dates: start: 19980101
  3. CARVEDILOL [Concomitant]
     Route: 065
     Dates: start: 19980101
  4. ASPIRIN [Concomitant]
     Route: 065
     Dates: start: 19980101
  5. FUROSEMIDE [Concomitant]
     Route: 065
     Dates: start: 19980101
  6. AMOXICILLIN [Suspect]
     Indication: UPPER RESPIRATORY TRACT INFECTION
     Route: 065

REACTIONS (5)
  - DRUG INTERACTION [None]
  - HEPATITIS [None]
  - PULMONARY OEDEMA [None]
  - RENAL IMPAIRMENT [None]
  - RHABDOMYOLYSIS [None]
